FAERS Safety Report 4750537-0 (Version None)
Quarter: 2005Q3

REPORT INFORMATION
  Report Type: 
  Country: None (occurrence: None)
  Receive Date: 20050823
  Receipt Date: 20050617
  Transmission Date: 20060218
  Serious: Yes (Death, Hospitalization)
  Sender: FDA-Public Use
  Company Number: US-MERCK-0506USA02956

PATIENT
  Age: 82 Year
  Sex: Male
  Weight: 80 kg

DRUGS (15)
  1. VIOXX [Suspect]
     Indication: GOUT
     Route: 048
     Dates: start: 19990501, end: 20030624
  2. VIOXX [Suspect]
     Route: 048
     Dates: start: 19990501, end: 20030624
  3. VIOXX [Suspect]
     Indication: ARTHRITIS
     Route: 048
     Dates: start: 19990501, end: 20030624
  4. VIOXX [Suspect]
     Route: 048
     Dates: start: 19990501, end: 20030624
  5. COUMADIN [Concomitant]
     Indication: MYOCARDIAL INFARCTION
     Route: 065
     Dates: end: 20030624
  6. NAPROXEN [Concomitant]
     Route: 065
     Dates: start: 19990501, end: 20030524
  7. NEURONTIN [Concomitant]
     Route: 065
  8. LASIX [Concomitant]
     Indication: HYPERTENSION
     Route: 065
     Dates: end: 20030624
  9. LASIX [Concomitant]
     Indication: OEDEMA PERIPHERAL
     Route: 065
     Dates: end: 20030624
  10. ALDACTAZIDE [Concomitant]
     Indication: HYPERTENSION
     Route: 065
     Dates: end: 20030624
  11. ALDACTAZIDE [Concomitant]
     Indication: OEDEMA PERIPHERAL
     Route: 065
     Dates: end: 20030624
  12. LANOXIN [Concomitant]
     Indication: ARRHYTHMIA
     Route: 065
     Dates: end: 20030624
  13. LIPITOR [Concomitant]
     Route: 065
     Dates: end: 20030624
  14. COZAAR [Concomitant]
     Indication: HYPERTENSION
     Route: 065
     Dates: end: 20030624
  15. COREG [Concomitant]
     Indication: HYPERTENSION
     Route: 065
     Dates: end: 20030624

REACTIONS (9)
  - ANXIETY [None]
  - CARDIAC DISORDER [None]
  - CARDIAC FAILURE [None]
  - CARDIAC FAILURE CONGESTIVE [None]
  - CEREBROVASCULAR ACCIDENT [None]
  - CONVULSION [None]
  - DEPRESSION [None]
  - GASTROINTESTINAL HAEMORRHAGE [None]
  - RENAL FAILURE [None]
